FAERS Safety Report 20171918 (Version 4)
Quarter: 2022Q2

REPORT INFORMATION
  Report Type: Spontaneous
  Country: JP (occurrence: JP)
  Receive Date: 20211210
  Receipt Date: 20220616
  Transmission Date: 20220721
  Serious: Yes (Other)
  Sender: FDA-Public Use
  Company Number: JP-ONO-2021JP030869

PATIENT
  Age: 74 Year
  Sex: Female
  Weight: 66.5 kg

DRUGS (4)
  1. BRAFTOVI [Suspect]
     Active Substance: ENCORAFENIB
     Indication: Malignant melanoma
     Dosage: 450 MG, 1X/DAY (EVERYDAY)
     Route: 048
     Dates: start: 20210824, end: 20210827
  2. BRAFTOVI [Suspect]
     Active Substance: ENCORAFENIB
     Dosage: 300 MG, 1X/DAY (EVERYDAY)
     Route: 048
     Dates: start: 20211109, end: 20211110
  3. MEKTOVI [Suspect]
     Active Substance: BINIMETINIB
     Indication: Malignant melanoma
     Dosage: 45 MG, 2X/DAY (Q12H)
     Route: 048
     Dates: start: 20210824, end: 20210827
  4. MEKTOVI [Suspect]
     Active Substance: BINIMETINIB
     Dosage: 30 MG, 2X/DAY (Q12H)
     Route: 048
     Dates: start: 20211109, end: 20211110

REACTIONS (3)
  - Tubulointerstitial nephritis [Recovering/Resolving]
  - Serous retinal detachment [Recovered/Resolved with Sequelae]
  - Hepatic function abnormal [Recovered/Resolved]

NARRATIVE: CASE EVENT DATE: 20210825
